FAERS Safety Report 12218444 (Version 2)
Quarter: 2017Q3

REPORT INFORMATION
  Report Type: Spontaneous
  Country: US (occurrence: US)
  Receive Date: 20160329
  Receipt Date: 20170712
  Transmission Date: 20171127
  Serious: Yes (Life-Threatening, Hospitalization, Other)
  Sender: FDA-Public Use
  Company Number: US-JNJFOC-20160320827

PATIENT
  Age: 57 Year
  Sex: Female

DRUGS (8)
  1. LISINOPRIL. [Concomitant]
     Active Substance: LISINOPRIL
     Indication: BLOOD PRESSURE MEASUREMENT
     Route: 065
     Dates: start: 2012
  2. LEVOTHYROXINE. [Concomitant]
     Active Substance: LEVOTHYROXINE
     Indication: THYROID DISORDER
     Route: 065
     Dates: start: 2007
  3. FUROSEMIDE. [Concomitant]
     Active Substance: FUROSEMIDE
     Indication: FLUID RETENTION
     Route: 065
     Dates: start: 2007
  4. NOVOLIN [Concomitant]
     Active Substance: INSULIN HUMAN
     Indication: PRODUCT USED FOR UNKNOWN INDICATION
     Dosage: 6 UNITS AT MEALS
     Route: 065
     Dates: start: 2010
  5. INVOKANA [Suspect]
     Active Substance: CANAGLIFLOZIN
     Indication: TYPE 2 DIABETES MELLITUS
     Route: 048
     Dates: start: 20141003, end: 20141010
  6. ASPIRIN. [Concomitant]
     Active Substance: ASPIRIN
     Indication: CEREBROVASCULAR ACCIDENT PROPHYLAXIS
     Route: 065
     Dates: start: 2013
  7. LORAZEPAM. [Concomitant]
     Active Substance: LORAZEPAM
     Indication: ANXIETY
     Route: 065
     Dates: start: 2014
  8. LEVEMIR [Suspect]
     Active Substance: INSULIN DETEMIR
     Indication: PRODUCT USED FOR UNKNOWN INDICATION
     Dosage: LONG ACTING INSULIN 40 UNITS DAILY
     Route: 065
     Dates: start: 2010

REACTIONS (10)
  - Acute respiratory failure [Unknown]
  - Necrotising fasciitis [Unknown]
  - Sepsis [Unknown]
  - Dehydration [Unknown]
  - Post-traumatic stress disorder [Unknown]
  - Septic encephalopathy [Unknown]
  - Acute kidney injury [Recovered/Resolved]
  - Renal failure [Unknown]
  - Urinary tract infection [Unknown]
  - Diabetic ketoacidosis [Recovered/Resolved]

NARRATIVE: CASE EVENT DATE: 20141008
